FAERS Safety Report 5336036-6 (Version None)
Quarter: 2007Q2

REPORT INFORMATION
  Report Type: 
  Country: None (occurrence: None)
  Receive Date: 20070302
  Receipt Date: 20061220
  Transmission Date: 20071010
  Serious: No
  Sender: FDA-Public Use
  Company Number: 2006MP001305

PATIENT

DRUGS (1)
  1. DACOGEN [Suspect]

REACTIONS (1)
  - SUPRAVENTRICULAR TACHYCARDIA [None]
